FAERS Safety Report 8050088-4 (Version None)
Quarter: 2012Q1

REPORT INFORMATION
  Report Type: 
  Country: None (occurrence: None)
  Receive Date: 20120117
  Receipt Date: 20120106
  Transmission Date: 20120608
  Serious: Yes (Hospitalization)
  Sender: FDA-Public Use
  Company Number: FR-PFIZER INC-2012004064

PATIENT
  Age: 72 Year
  Sex: Female

DRUGS (5)
  1. CELEBREX [Suspect]
     Dosage: 2 DF, 1X/DAY
     Route: 048
     Dates: start: 20111119, end: 20111126
  2. ESCITALOPRAM [Concomitant]
     Dosage: 1 DF, 1X/DAY
  3. CANDESARTAN CILEXETIL [Concomitant]
     Dosage: 1 DF, 1X/DAY
  4. ZOLPIDEM [Suspect]
     Dosage: 1 DF, 1X/DAY (10MG)
     Dates: start: 20110501, end: 20111128
  5. HYALURONIC ACID [Concomitant]
     Dosage: UNK
     Dates: start: 20111114

REACTIONS (4)
  - RASH GENERALISED [None]
  - PRURITUS [None]
  - EYELID OEDEMA [None]
  - PYREXIA [None]
